FAERS Safety Report 9902682 (Version 2)
Quarter: 2014Q1

REPORT INFORMATION
  Report Type: Spontaneous
  Country: US (occurrence: US)
  Receive Date: 20140217
  Receipt Date: 20140221
  Transmission Date: 20141002
  Serious: No
  Sender: FDA-Public Use
  Company Number: US-PFIZER INC-2014043788

PATIENT
  Age: 60 Year
  Sex: Female

DRUGS (13)
  1. SUTENT [Suspect]
     Indication: RENAL CANCER
     Dosage: STRENGTH 25MG AND 12.5 MG
     Dates: start: 20140124
  2. ACETAMINOPHEN [Concomitant]
     Dosage: UNK
  3. B COMPLEX [Concomitant]
     Dosage: UNK
  4. CLOPIDOGREL BISULFATE [Concomitant]
     Dosage: UNK
  5. COMPAZINE [Concomitant]
     Dosage: UNK
  6. FERROUS SULFATE [Concomitant]
     Dosage: UNK
  7. LORATADINE - D [Concomitant]
     Dosage: UNK, 12HR
  8. METOPROLOL SUCCINATE [Concomitant]
     Dosage: UNK
  9. MORPHINE SULFATE [Concomitant]
     Dosage: UNK
  10. ONDANSETRON HCL [Concomitant]
     Dosage: UNK
  11. PHENYTOIN SODIUM [Concomitant]
     Dosage: UNK
  12. SERTRALINE HCL [Concomitant]
     Dosage: UNK
  13. VITAMIN D3 [Concomitant]
     Dosage: UNK

REACTIONS (3)
  - Malaise [Unknown]
  - Disease progression [Unknown]
  - Renal cancer [Unknown]
